FAERS Safety Report 15785348 (Version 1)
Quarter: 2019Q1

REPORT INFORMATION
  Report Type: Spontaneous
  Country: US (occurrence: US)
  Receive Date: 20190102
  Receipt Date: 20190102
  Transmission Date: 20190417
  Serious: No
  Sender: FDA-Public Use
  Company Number: None

PATIENT
  Age: 68 Year
  Sex: Male
  Weight: 86.4 kg

DRUGS (2)
  1. LIDOCAINE GENERIC 5% PATCHES [Suspect]
     Active Substance: LIDOCAINE
     Indication: PAIN
     Dates: start: 20180409, end: 20180709
  2. LIDOCAINE GENERIC 5% PATCHES [Suspect]
     Active Substance: LIDOCAINE
     Indication: ARTHRALGIA
     Dates: start: 20180409, end: 20180709

REACTIONS (2)
  - Skin irritation [None]
  - Device adhesion issue [None]
